FAERS Safety Report 20215153 (Version 2)
Quarter: 2021Q4

REPORT INFORMATION
  Report Type: Report from Study
  Country: JP (occurrence: JP)
  Receive Date: 20211222
  Receipt Date: 20211229
  Transmission Date: 20220303
  Serious: Yes (Other)
  Sender: FDA-Public Use
  Company Number: JP-CELLTRION INC.-2021JP017216

PATIENT

DRUGS (19)
  1. INVESTIGATIONAL BIOSIMILARS [Suspect]
     Active Substance: INVESTIGATIONAL BIOSIMILARS
     Indication: HER2 positive gastric cancer
     Dosage: 600 MG, QD (LOADING DOSE; 8MG/KG)
     Route: 041
     Dates: start: 20200909, end: 20200909
  2. INVESTIGATIONAL BIOSIMILARS [Suspect]
     Active Substance: INVESTIGATIONAL BIOSIMILARS
     Dosage: 440 MG, QD (6MG/KG)
     Route: 041
     Dates: start: 20201005, end: 20201005
  3. INVESTIGATIONAL BIOSIMILARS [Suspect]
     Active Substance: INVESTIGATIONAL BIOSIMILARS
     Dosage: 440 MG, QD (6MG/KG)
     Route: 041
     Dates: start: 20201026, end: 20201026
  4. INVESTIGATIONAL BIOSIMILARS [Suspect]
     Active Substance: INVESTIGATIONAL BIOSIMILARS
     Dosage: 440 MG, QD (6MG/KG)
     Route: 041
     Dates: start: 20201116, end: 20201116
  5. INVESTIGATIONAL BIOSIMILARS [Suspect]
     Active Substance: INVESTIGATIONAL BIOSIMILARS
     Dosage: 440 MG, QD (6MG/KG)
     Route: 041
     Dates: start: 20201214, end: 20201214
  6. OXALIPLATIN [Suspect]
     Active Substance: OXALIPLATIN
     Indication: HER2 positive gastric cancer
     Dosage: 240 MG, QD
     Route: 041
     Dates: start: 20201005, end: 20201005
  7. OXALIPLATIN [Suspect]
     Active Substance: OXALIPLATIN
     Dosage: 240 MG, QD
     Route: 041
     Dates: start: 20201026, end: 20201026
  8. OXALIPLATIN [Suspect]
     Active Substance: OXALIPLATIN
     Dosage: 240 MG, QD
     Route: 041
     Dates: start: 20201116, end: 20201116
  9. OXALIPLATIN [Suspect]
     Active Substance: OXALIPLATIN
     Dosage: 190 MG, QD
     Route: 041
     Dates: start: 20201214, end: 20201214
  10. CAPECITABINE [Suspect]
     Active Substance: CAPECITABINE
     Indication: HER2 positive gastric cancer
     Dosage: 3600 MG, QD
     Route: 048
     Dates: start: 20200909, end: 20200922
  11. CAPECITABINE [Suspect]
     Active Substance: CAPECITABINE
     Dosage: 3600 MG, QD
     Route: 048
     Dates: start: 20201005, end: 20201018
  12. CAPECITABINE [Suspect]
     Active Substance: CAPECITABINE
     Dosage: 3600 MG, QD
     Route: 048
     Dates: start: 20201026, end: 20201108
  13. CAPECITABINE [Suspect]
     Active Substance: CAPECITABINE
     Dosage: 3600 MG, QD
     Route: 048
     Dates: start: 20201116, end: 20201129
  14. CAPECITABINE [Suspect]
     Active Substance: CAPECITABINE
     Dosage: 3600 MG, QD
     Route: 048
     Dates: start: 20201214, end: 20201227
  15. ALOXI [Concomitant]
     Active Substance: PALONOSETRON HYDROCHLORIDE
     Indication: Prophylaxis
     Dosage: UNK
     Dates: start: 20200909, end: 20201214
  16. DEXAMETHASONE SODIUM PHOSPHATE [Concomitant]
     Active Substance: DEXAMETHASONE SODIUM PHOSPHATE
     Indication: Prophylaxis
     Dosage: UNK
     Dates: start: 20200909, end: 20201214
  17. DECADRON [Concomitant]
     Active Substance: DEXAMETHASONE
     Indication: Prophylaxis
     Dosage: UNK
     Dates: start: 20200910, end: 20201216
  18. APREPITANT [Concomitant]
     Active Substance: APREPITANT
     Indication: Prophylaxis
     Dosage: UNK
     Dates: start: 20200909, end: 20201216
  19. SODIUM FERROUS CITRATE [Concomitant]
     Active Substance: SODIUM FERROUS CITRATE
     Indication: Anaemia
     Dosage: UNK
     Dates: start: 20200831, end: 20201015

REACTIONS (5)
  - Jugular vein thrombosis [Recovered/Resolved]
  - Neutrophil count decreased [Recovered/Resolved]
  - Platelet count decreased [Recovered/Resolved]
  - Off label use [Unknown]
  - Underdose [Unknown]

NARRATIVE: CASE EVENT DATE: 20201005
